FAERS Safety Report 6153696-0 (Version None)
Quarter: 2009Q2

REPORT INFORMATION
  Report Type: 
  Country: None (occurrence: None)
  Receive Date: 20090410
  Receipt Date: 20090405
  Transmission Date: 20091009
  Serious: Yes (Other)
  Sender: FDA-Public Use
  Company Number: CHPA2009US08762

PATIENT
  Age: 35 Year
  Sex: Male
  Weight: 83.9 kg

DRUGS (1)
  1. THERAFLU FORTIFENSE DIETERY SUPP (NCH) (UNKNOWN) POWDER [Suspect]
     Dosage: UNK UNK ORAL
     Route: 048

REACTIONS (4)
  - HEADACHE [None]
  - OEDEMA PERIPHERAL [None]
  - PYREXIA [None]
  - SWELLING FACE [None]
